FAERS Safety Report 6555992-1 (Version None)
Quarter: 2010Q1

REPORT INFORMATION
  Report Type: 
  Country: None (occurrence: None)
  Receive Date: 20100128
  Receipt Date: 20090312
  Transmission Date: 20100710
  Serious: Yes (Hospitalization)
  Sender: FDA-Public Use
  Company Number: US-TEVA-182327USA

PATIENT
  Sex: Female
  Weight: 84.444 kg

DRUGS (14)
  1. COPAXONE [Suspect]
     Indication: MULTIPLE SCLEROSIS
     Route: 058
     Dates: start: 19970101, end: 20080507
  2. ALBUTEROL [Concomitant]
     Dosage: PRN
  3. BACLOFEN [Concomitant]
  4. CLONAZEPAM [Concomitant]
  5. CODEINE SUL TAB [Concomitant]
     Dosage: PRN
  6. FLUTICASONE PROPIONATE [Concomitant]
  7. GABAPENTIN [Concomitant]
  8. MIRTAZAPINE [Concomitant]
  9. MODAFINIL [Concomitant]
  10. MONTELUKAST [Concomitant]
  11. TRAZODONE [Concomitant]
     Dosage: PRN
  12. VENLAFAXINE [Concomitant]
  13. VITAMINS [Concomitant]
  14. CALCIUM [Concomitant]

REACTIONS (2)
  - INJECTION SITE REACTION [None]
  - MENINGIOMA [None]
